FAERS Safety Report 12304509 (Version 3)
Quarter: 2016Q2

REPORT INFORMATION
  Report Type: Spontaneous
  Country: JP (occurrence: JP)
  Receive Date: 20160426
  Receipt Date: 20160518
  Transmission Date: 20160815
  Serious: Yes (Hospitalization)
  Sender: FDA-Public Use
  Company Number: JP-BAXTER-2016BAX020971

PATIENT
  Age: 46 Year
  Sex: Female

DRUGS (8)
  1. 5-FU [Suspect]
     Active Substance: FLUOROURACIL
     Indication: BREAST CANCER
     Dosage: 1ST COURSE
     Route: 041
     Dates: start: 20160406, end: 20160406
  2. FARMORUBICIN [Suspect]
     Active Substance: EPIRUBICIN HYDROCHLORIDE
     Indication: BREAST CANCER
     Dosage: 1ST COURSE
     Route: 041
     Dates: start: 20160406, end: 20160406
  3. ALOXI [Concomitant]
     Active Substance: PALONOSETRON HYDROCHLORIDE
     Indication: PROPHYLAXIS
     Route: 041
     Dates: start: 20160406, end: 20160406
  4. EMEND [Concomitant]
     Active Substance: APREPITANT
     Indication: PROPHYLAXIS
     Route: 048
     Dates: start: 20160406, end: 20160406
  5. EMEND [Concomitant]
     Active Substance: APREPITANT
     Route: 065
     Dates: start: 20160407, end: 20160408
  6. ENDOXAN 1G [Suspect]
     Active Substance: CYCLOPHOSPHAMIDE
     Indication: BREAST CANCER
     Dosage: 1ST COURSE
     Route: 041
     Dates: start: 20160406, end: 20160406
  7. G-LASTA [Concomitant]
     Active Substance: PEGFILGRASTIM
     Indication: PROPHYLAXIS
     Route: 058
     Dates: start: 20160407, end: 20160407
  8. DEXART [Concomitant]
     Active Substance: DEXAMETHASONE SODIUM PHOSPHATE
     Indication: PROPHYLAXIS
     Route: 041
     Dates: start: 20160406, end: 20160406

REACTIONS (3)
  - Abdominal distension [Recovered/Resolved]
  - Amylase increased [Recovered/Resolved]
  - Nausea [Recovered/Resolved]

NARRATIVE: CASE EVENT DATE: 20160406
